FAERS Safety Report 9751999 (Version 1)
Quarter: 2013Q4

REPORT INFORMATION
  Report Type: Spontaneous
  Country: US (occurrence: US)
  Receive Date: 20131213
  Receipt Date: 20131213
  Transmission Date: 20140711
  Serious: Yes (Other)
  Sender: FDA-Public Use
  Company Number: US-ROCHE-1318722

PATIENT
  Sex: Male

DRUGS (1)
  1. AVASTIN [Suspect]
     Indication: COLON CANCER
     Dosage: DATE OF THE LAST DOSE 27/NOV/2013
     Route: 065
     Dates: start: 20131023

REACTIONS (1)
  - Nephrolithiasis [Not Recovered/Not Resolved]
